FAERS Safety Report 6854597-2 (Version None)
Quarter: 2010Q3

REPORT INFORMATION
  Report Type: 
  Country: None (occurrence: None)
  Receive Date: 20100717
  Receipt Date: 20080111
  Transmission Date: 20110219
  Serious: No
  Sender: FDA-Public Use
  Company Number: US-PFIZER INC-2008003381

PATIENT
  Sex: Female
  Weight: 70.3 kg

DRUGS (3)
  1. CHANTIX [Suspect]
     Indication: SMOKING CESSATION THERAPY
     Dates: start: 20071203
  2. PROPACET 100 [Concomitant]
     Indication: OSTEOARTHRITIS
     Dates: start: 20040101
  3. IBUPROFEN [Concomitant]
     Dates: start: 20080101

REACTIONS (1)
  - FLATULENCE [None]
